FAERS Safety Report 6604463-2 (Version None)
Quarter: 2010Q1

REPORT INFORMATION
  Report Type: 
  Country: None (occurrence: None)
  Receive Date: 20100226
  Receipt Date: 20091020
  Transmission Date: 20100710
  Serious: No
  Sender: FDA-Public Use
  Company Number: A0812589A

PATIENT
  Age: 50 Year
  Sex: Female

DRUGS (3)
  1. LAMICTAL CD [Suspect]
     Indication: BIPOLAR DISORDER
     Dosage: 400MG PER DAY
     Route: 048
     Dates: start: 20050101, end: 20090801
  2. LAMOTRIGINE [Suspect]
     Indication: BIPOLAR DISORDER
     Dosage: 300MG PER DAY
     Route: 048
     Dates: start: 20091001
  3. KLONOPIN [Concomitant]

REACTIONS (6)
  - CONFUSIONAL STATE [None]
  - DIZZINESS [None]
  - DRUG INEFFECTIVE [None]
  - FATIGUE [None]
  - HEADACHE [None]
  - INSOMNIA [None]
